FAERS Safety Report 5142753-3 (Version None)
Quarter: 2006Q4

REPORT INFORMATION
  Report Type: 
  Country: None (occurrence: None)
  Receive Date: 20061102
  Receipt Date: 20061025
  Transmission Date: 20070319
  Serious: Yes (Other)
  Sender: FDA-Public Use
  Company Number: 2006UW20724

PATIENT
  Age: 16 Year
  Sex: Female

DRUGS (3)
  1. SEROQUEL [Suspect]
     Dosage: 40 X 25MG
     Route: 048
  2. ATIVAN [Suspect]
     Dosage: 20 X1MG
  3. CLONAZEPAM [Suspect]
     Dosage: 20X1MG

REACTIONS (4)
  - COMA [None]
  - HYPOTENSION [None]
  - SOMNOLENCE [None]
  - TACHYCARDIA [None]
